FAERS Safety Report 7215347-3 (Version None)
Quarter: 2011Q1

REPORT INFORMATION
  Report Type: 
  Country: None (occurrence: None)
  Receive Date: 20110107
  Receipt Date: 20110103
  Transmission Date: 20110831
  Serious: No
  Sender: FDA-Public Use
  Company Number: US-JNJCH-2010027434

PATIENT
  Sex: Male

DRUGS (1)
  1. COOL MINT LISTERINE POCKETMIST [Suspect]
     Indication: PRODUCT USED FOR UNKNOWN INDICATION
     Dosage: TEXT:UNKNOWN
     Route: 048

REACTIONS (1)
  - LABORATORY TEST ABNORMAL [None]
